FAERS Safety Report 6323849-7 (Version None)
Quarter: 2009Q3

REPORT INFORMATION
  Report Type: 
  Country: None (occurrence: None)
  Receive Date: 20090820
  Receipt Date: 20090808
  Transmission Date: 20100115
  Serious: Yes (Death, Other)
  Sender: FDA-Public Use
  Company Number: 2009AP003213

PATIENT
  Age: 70 Year
  Sex: Male

DRUGS (7)
  1. PRAVASTATIN SODIUM [Suspect]
  2. ATORVASTATIN [Suspect]
  3. CERIVASTATIN [Suspect]
  4. EZETIMIBE [Suspect]
  5. FLUVASTATIN [Suspect]
  6. ROSUVASTATIN CALCIUM [Suspect]
  7. SIMVASTATIN [Suspect]

REACTIONS (4)
  - AMYOTROPHIC LATERAL SCLEROSIS [None]
  - MYALGIA [None]
  - PRODUCT SUBSTITUTION ISSUE [None]
  - RASH [None]
